FAERS Safety Report 19759498 (Version 1)
Quarter: 2021Q3

REPORT INFORMATION
  Report Type: Spontaneous
  Country: US (occurrence: US)
  Receive Date: 20210829
  Receipt Date: 20210829
  Transmission Date: 20211014
  Serious: No
  Sender: FDA-Public Use
  Company Number: US-GLAXOSMITHKLINE-US2021AMR179287

PATIENT
  Age: 36 Year
  Sex: Female

DRUGS (1)
  1. ZEJULA [Suspect]
     Active Substance: NIRAPARIB
     Indication: OVARIAN CANCER
     Dosage: 100 MG,AT BEDTIME
     Dates: start: 20210813

REACTIONS (5)
  - Off label use [Unknown]
  - Rash [Unknown]
  - Loss of personal independence in daily activities [Unknown]
  - Drug monitoring procedure not performed [Unknown]
  - Nausea [Not Recovered/Not Resolved]

NARRATIVE: CASE EVENT DATE: 202108
